FAERS Safety Report 6772816-8 (Version None)
Quarter: 2010Q2

REPORT INFORMATION
  Report Type: 
  Country: None (occurrence: None)
  Receive Date: 20100616
  Receipt Date: 20100610
  Transmission Date: 20101027
  Serious: Yes (Hospitalization)
  Sender: FDA-Public Use
  Company Number: NL-BRISTOL-MYERS SQUIBB COMPANY-15137458

PATIENT
  Age: 75 Year
  Sex: Female

DRUGS (5)
  1. APROVEL [Suspect]
     Indication: HYPERTENSION
     Route: 048
     Dates: start: 19980101, end: 20100501
  2. OMEPRAZOLE [Concomitant]
  3. IMODIUM [Concomitant]
  4. AMLODIPINE [Concomitant]
  5. ATENOLOL [Concomitant]

REACTIONS (8)
  - DIARRHOEA [None]
  - DYSPNOEA [None]
  - HYDRONEPHROSIS [None]
  - PAIN [None]
  - PYREXIA [None]
  - RENAL FAILURE [None]
  - SHOCK [None]
  - UROSEPSIS [None]
